FAERS Safety Report 17224233 (Version 1)
Quarter: 2020Q1

REPORT INFORMATION
  Report Type: Spontaneous
  Country: JP (occurrence: JP)
  Receive Date: 20200102
  Receipt Date: 20200102
  Transmission Date: 20200409
  Serious: Yes (Other)
  Sender: FDA-Public Use
  Company Number: JP-PFIZER INC-2019555981

PATIENT
  Age: 70 Year
  Sex: Male

DRUGS (1)
  1. LYRICA [Suspect]
     Active Substance: PREGABALIN
     Indication: MUSCULOSKELETAL STIFFNESS
     Dosage: 4 DF, UNK
     Route: 048

REACTIONS (9)
  - Off label use [Unknown]
  - Product use in unapproved indication [Unknown]
  - Intestinal polyp [Unknown]
  - Gastric disorder [Unknown]
  - Fall [Unknown]
  - Depression [Unknown]
  - Decreased appetite [Unknown]
  - Cataract [Unknown]
  - Drug ineffective [Unknown]

NARRATIVE: CASE EVENT DATE: 201910
